FAERS Safety Report 5700984-5 (Version None)
Quarter: 2008Q2

REPORT INFORMATION
  Report Type: 
  Country: None (occurrence: None)
  Receive Date: 20080410
  Receipt Date: 20060317
  Transmission Date: 20081010
  Serious: Yes (Other)
  Sender: FDA-Public Use
  Company Number: GB-JNJFOC-20080401408

PATIENT
  Age: 57 Year
  Sex: Female

DRUGS (2)
  1. CHILDREN'S IBUPROFEN [Suspect]
     Indication: PYREXIA
     Route: 048
  2. LOPERAMIDE HCL [Concomitant]
     Indication: DIARRHOEA
     Route: 048

REACTIONS (3)
  - ABNORMAL DREAMS [None]
  - DELUSION [None]
  - ILLUSION [None]
